FAERS Safety Report 11273563 (Version 1)
Quarter: 2015Q3

REPORT INFORMATION
  Report Type: Spontaneous
  Country: US (occurrence: US)
  Receive Date: 20150715
  Receipt Date: 20150715
  Transmission Date: 20151125
  Serious: Yes (Hospitalization)
  Sender: FDA-Public Use
  Company Number: US-JNJFOC-20150710597

PATIENT
  Sex: Male

DRUGS (8)
  1. IMBRUVICA [Suspect]
     Active Substance: IBRUTINIB
     Indication: MANTLE CELL LYMPHOMA
     Route: 048
     Dates: start: 20140827
  2. DULERA [Concomitant]
     Active Substance: FORMOTEROL FUMARATE DIHYDRATE\MOMETASONE FUROATE
     Dates: end: 201506
  3. VELCADE [Concomitant]
     Active Substance: BORTEZOMIB
  4. ATIVAN [Concomitant]
     Active Substance: LORAZEPAM
  5. SPIRIVA [Concomitant]
     Active Substance: TIOTROPIUM BROMIDE MONOHYDRATE
  6. LOSARTAN. [Concomitant]
     Active Substance: LOSARTAN
  7. PROAIR(SALBUTAMOL SULFATE) [Concomitant]
  8. EXELON [Concomitant]
     Active Substance: RIVASTIGMINE TARTRATE

REACTIONS (1)
  - Immunosuppression [Unknown]
